FAERS Safety Report 8819200 (Version 2)
Quarter: 2012Q4

REPORT INFORMATION
  Report Type: 
  Country: US (occurrence: US)
  Receive Date: 20121001
  Receipt Date: 20121106
  Transmission Date: 20130627
  Serious: Yes (Other)
  Sender: FDA-Public Use
  Company Number: US-PFIZER INC-2012240636

PATIENT
  Age: 43 Year
  Sex: Male
  Weight: 97.51 kg

DRUGS (6)
  1. LYRICA [Suspect]
     Indication: NEUROPATHIC PAIN
     Dosage: 150 mg, 2x/day
     Route: 048
     Dates: start: 2012
  2. LYRICA [Suspect]
     Indication: PAIN
     Dosage: 100 UNK, 2x/day
     Route: 048
     Dates: start: 201208, end: 201210
  3. IBUPROFEN [Concomitant]
     Dosage: UNK
  4. VICODIN [Concomitant]
     Indication: PAIN
     Dosage: 1-2, q6hrs, PRN
     Dates: start: 2011, end: 201210
  5. MORPHINE [Concomitant]
     Dosage: UNK
  6. TEMAZEPAM [Concomitant]
     Indication: INSOMNIA
     Dosage: 30 mg, qhs
     Route: 048

REACTIONS (4)
  - Suicidal ideation [Not Recovered/Not Resolved]
  - Platelet count decreased [Not Recovered/Not Resolved]
  - Oedema peripheral [Not Recovered/Not Resolved]
  - Depression [Recovering/Resolving]
